FAERS Safety Report 4607291-2 (Version None)
Quarter: 2005Q1

REPORT INFORMATION
  Report Type: 
  Country: None (occurrence: None)
  Receive Date: 20050309
  Receipt Date: 20050222
  Transmission Date: 20050727
  Serious: Yes (Hospitalization, Other)
  Sender: FDA-Public Use
  Company Number: US_0502113393

PATIENT
  Sex: Female

DRUGS (1)
  1. PERMAX [Suspect]
     Indication: PARKINSON'S DISEASE
     Dosage: 3 MG DAY
     Dates: start: 20001201, end: 20030221

REACTIONS (14)
  - AORTIC VALVE INCOMPETENCE [None]
  - CARDIAC FAILURE CONGESTIVE [None]
  - CONDITION AGGRAVATED [None]
  - FATIGUE [None]
  - INJURY [None]
  - MITRAL VALVE CALCIFICATION [None]
  - MITRAL VALVE INCOMPETENCE [None]
  - OEDEMA [None]
  - PAIN [None]
  - PARKINSON'S DISEASE [None]
  - POST PROCEDURAL COMPLICATION [None]
  - RHEUMATIC HEART DISEASE [None]
  - STRESS [None]
  - TRICUSPID VALVE INCOMPETENCE [None]
